FAERS Safety Report 4315944-9 (Version None)
Quarter: 2004Q1

REPORT INFORMATION
  Report Type: 
  Country: None (occurrence: None)
  Receive Date: 20040310
  Receipt Date: 20040224
  Transmission Date: 20041129
  Serious: Yes (Hospitalization)
  Sender: FDA-Public Use
  Company Number: RENA-10914

PATIENT
  Age: 52 Year
  Sex: Male
  Weight: 71 kg

DRUGS (5)
  1. RENAGEL [Suspect]
     Indication: HYPERPHOSPHATAEMIA
     Dosage: 0.8 G TID PO
     Route: 048
     Dates: start: 20021021, end: 20040218
  2. RETINEC [Concomitant]
  3. LOPRESSOR [Concomitant]
  4. ELISOR [Concomitant]
  5. EUCALCIC [Concomitant]

REACTIONS (1)
  - GASTROENTERITIS [None]
